FAERS Safety Report 5329103-4 (Version None)
Quarter: 2007Q2

REPORT INFORMATION
  Report Type: 
  Country: None (occurrence: None)
  Receive Date: 20070518
  Receipt Date: 20070516
  Transmission Date: 20071010
  Serious: Yes (Other)
  Sender: FDA-Public Use
  Company Number: GB-BOEHRINGER INGELHEIM PHARMACEUTICALS, INC.-2007-UK-01587UK

PATIENT
  Age: 59 Year
  Sex: Female
  Weight: 80 kg

DRUGS (1)
  1. TIOTROPIUM (00015/0190/A) [Suspect]
     Indication: CHRONIC OBSTRUCTIVE PULMONARY DISEASE
     Route: 055
     Dates: start: 20060301, end: 20060601

REACTIONS (2)
  - EPISTAXIS [None]
  - HAEMOGLOBIN DECREASED [None]
